FAERS Safety Report 14046014 (Version 1)
Quarter: 2017Q4

REPORT INFORMATION
  Report Type: Spontaneous
  Country: US (occurrence: US)
  Receive Date: 20171005
  Receipt Date: 20171005
  Transmission Date: 20180321
  Serious: Yes (Hospitalization, Disabling)
  Sender: FDA-Public Use
  Company Number: None

PATIENT
  Age: 66 Year
  Sex: Female
  Weight: 90 kg

DRUGS (15)
  1. TUMERIC [Concomitant]
     Active Substance: HERBALS\TURMERIC
  2. EMOPROZOLE [Concomitant]
  3. VITAMIN C [Concomitant]
     Active Substance: ASCORBIC ACID
  4. VITAMIN B12 [Concomitant]
     Active Substance: CYANOCOBALAMIN
  5. COQ10 [Concomitant]
     Active Substance: UBIDECARENONE
  6. GARLIC. [Concomitant]
     Active Substance: GARLIC
  7. CALCIUM [Concomitant]
     Active Substance: CALCIUM
  8. CINNAMON. [Concomitant]
     Active Substance: CINNAMON
  9. PURIXAN [Suspect]
     Active Substance: MERCAPTOPURINE
  10. OMEGA 3 [Concomitant]
     Active Substance: OMEGA-3 FATTY ACIDS
  11. RED YEAST RICE [Concomitant]
     Active Substance: DIETARY SUPPLEMENT
  12. SIMVASTATIN. [Concomitant]
     Active Substance: SIMVASTATIN
  13. VITAMIN E [Concomitant]
     Active Substance: .ALPHA.-TOCOPHEROL
  14. PURINETHOL [Suspect]
     Active Substance: MERCAPTOPURINE
     Indication: COLITIS ULCERATIVE
     Dosage: ?          QUANTITY:3 TABLET(S);?
     Route: 048
     Dates: start: 20170812, end: 20170924
  15. METFORMIN [Concomitant]
     Active Substance: METFORMIN HYDROCHLORIDE

REACTIONS (11)
  - Nasal discomfort [None]
  - Hyperaesthesia [None]
  - Dyspnoea exertional [None]
  - Stomatitis [None]
  - Tinnitus [None]
  - White blood cell count decreased [None]
  - Haemoglobin decreased [None]
  - Skin disorder [None]
  - Lip pain [None]
  - Platelet count decreased [None]
  - Dyspnoea [None]

NARRATIVE: CASE EVENT DATE: 20170927
